FAERS Safety Report 9707283 (Version 1)
Quarter: 2013Q4

REPORT INFORMATION
  Report Type: Spontaneous
  Country: US (occurrence: US)
  Receive Date: 20131125
  Receipt Date: 20131125
  Transmission Date: 20140711
  Serious: No
  Sender: FDA-Public Use
  Company Number: US-PFIZER INC-2013331971

PATIENT
  Sex: Male

DRUGS (1)
  1. ADVIL [Suspect]
     Indication: SINUS HEADACHE
     Dosage: UNK

REACTIONS (4)
  - Overdose [Unknown]
  - Insomnia [Unknown]
  - Influenza [Unknown]
  - Product label issue [Unknown]
